FAERS Safety Report 5193892-2 (Version None)
Quarter: 2006Q4

REPORT INFORMATION
  Report Type: 
  Country: None (occurrence: None)
  Receive Date: 20061221
  Receipt Date: 20061211
  Transmission Date: 20070319
  Serious: Yes (Death)
  Sender: FDA-Public Use
  Company Number: 213550

PATIENT
  Age: 68 Year
  Sex: Male

DRUGS (10)
  1. RITUXIMAB ( RITUXIMAB) CONC FOR SOLUTION FOR INFUSION [Suspect]
     Indication: PROPHYLAXIS AGAINST TRANSPLANT REJECTION
     Dosage: SEE IMAGE, INTRAVENOUS
     Route: 042
     Dates: start: 20050207, end: 20050207
  2. RITUXIMAB ( RITUXIMAB) CONC FOR SOLUTION FOR INFUSION [Suspect]
     Indication: PROPHYLAXIS AGAINST TRANSPLANT REJECTION
     Dosage: SEE IMAGE, INTRAVENOUS
     Route: 042
     Dates: start: 20050225, end: 20050225
  3. RITUXIMAB ( RITUXIMAB) CONC FOR SOLUTION FOR INFUSION [Suspect]
     Indication: PROPHYLAXIS AGAINST TRANSPLANT REJECTION
     Dosage: SEE IMAGE, INTRAVENOUS
     Route: 042
     Dates: start: 20050227, end: 20050227
  4. PROGRAF [Concomitant]
  5. CELLCEPT [Concomitant]
  6. SOLU-MEDROL [Concomitant]
  7. OMEPRAZOLE [Concomitant]
  8. ALPROSTADIL [Concomitant]
  9. DOPAMINE (DOPAMINE HYDROCHLORIDE) [Concomitant]
  10. DOBUTAMINE (DOBUTAMINE) [Concomitant]

REACTIONS (16)
  - ACIDOSIS [None]
  - ANAEMIA [None]
  - ARTERIOSCLEROSIS OBLITERANS [None]
  - BRAIN HERNIATION [None]
  - CARDIAC ARREST [None]
  - CARDIOVASCULAR DISORDER [None]
  - CAROTID ARTERY THROMBOSIS [None]
  - CEREBRAL INFARCTION [None]
  - DIALYSIS [None]
  - ISCHAEMIA [None]
  - MYDRIASIS [None]
  - RENAL TRANSPLANT [None]
  - RESPIRATORY ARREST [None]
  - SHOCK [None]
  - THERAPY NON-RESPONDER [None]
  - WOUND HAEMORRHAGE [None]
